FAERS Safety Report 8434441-2 (Version None)
Quarter: 2012Q2

REPORT INFORMATION
  Report Type: 
  Country: None (occurrence: None)
  Receive Date: 20120614
  Receipt Date: 20120531
  Transmission Date: 20120825
  Serious: Yes (Hospitalization, Other)
  Sender: FDA-Public Use
  Company Number: CO-AMGEN-COLCT2011068843

PATIENT
  Age: 66 Year
  Sex: Female

DRUGS (3)
  1. ETANERCEPT [Suspect]
     Indication: RHEUMATOID ARTHRITIS
     Dosage: UNK
     Route: 058
     Dates: start: 20110822, end: 20111206
  2. ETANERCEPT [Suspect]
     Dosage: 50 MG, UNK
     Dates: end: 20120411
  3. CALCIUM [Concomitant]
     Dosage: UNK

REACTIONS (6)
  - CONJUNCTIVITIS [None]
  - HIP SURGERY [None]
  - NASOPHARYNGITIS [None]
  - FALL [None]
  - APHONIA [None]
  - INFLUENZA [None]
